FAERS Safety Report 8602834 (Version 3)
Quarter: 2012Q4

REPORT INFORMATION
  Report Type: 
  Country: AU (occurrence: AU)
  Receive Date: 20120607
  Receipt Date: 20120921
  Transmission Date: 20130627
  Serious: Yes (Hospitalization)
  Sender: FDA-Public Use
  Company Number: AU-ROCHE-1073350

PATIENT
  Age: 57 Year
  Sex: Male
  Weight: 63.47 kg

DRUGS (10)
  1. CLONAZEPAM [Suspect]
     Indication: MYOCLONUS
     Route: 048
     Dates: start: 20120411, end: 20120411
  2. ARICEPT [Concomitant]
     Indication: DEMENTIA ALZHEIMER^S TYPE
     Route: 065
     Dates: start: 20090723
  3. FOLATE [Concomitant]
     Route: 065
     Dates: start: 20090723
  4. MEGA B [Concomitant]
     Route: 065
     Dates: start: 20090723
  5. FISH OIL [Concomitant]
     Route: 048
     Dates: start: 20100628
  6. PARACETAMOL [Concomitant]
     Dosage: Dose: 500 mg to 1 gram
     Route: 048
     Dates: start: 20100407
  7. VALSARTAN [Concomitant]
     Indication: HYPERTENSION
     Route: 048
     Dates: start: 20120331
  8. SINEMET [Concomitant]
     Indication: MYOCLONUS
     Dosage: 100/25 half tablet 2 daily
     Route: 048
     Dates: start: 20120119, end: 20120425
  9. SODIUM VALPROATE [Concomitant]
     Indication: MYOCLONUS
     Route: 065
     Dates: start: 20120412, end: 20120414
  10. SODIUM VALPROATE [Concomitant]
     Route: 065
     Dates: start: 20120415

REACTIONS (6)
  - Dementia [Recovered/Resolved]
  - Constipation [Recovered/Resolved]
  - Agitation [Not Recovered/Not Resolved]
  - Hallucination [Not Recovered/Not Resolved]
  - Urinary tract infection [Recovered/Resolved]
  - Neurodegenerative disorder [Not Recovered/Not Resolved]
